FAERS Safety Report 25795465 (Version 1)
Quarter: 2025Q3

REPORT INFORMATION
  Report Type: Spontaneous
  Country: US (occurrence: US)
  Receive Date: 20250912
  Receipt Date: 20250912
  Transmission Date: 20251020
  Serious: Yes (Hospitalization, Other)
  Sender: MYLAN
  Company Number: US-MYLANLABS-2025M1077318

PATIENT
  Age: 83 Year
  Sex: Female

DRUGS (28)
  1. CITALOPRAM [Suspect]
     Active Substance: CITALOPRAM
     Indication: Depression
     Dosage: 20 MILLIGRAM, QD
  2. CITALOPRAM [Suspect]
     Active Substance: CITALOPRAM
     Indication: Anxiety
     Dosage: 20 MILLIGRAM, QD
     Route: 065
  3. CITALOPRAM [Suspect]
     Active Substance: CITALOPRAM
     Dosage: 20 MILLIGRAM, QD
     Route: 065
  4. CITALOPRAM [Suspect]
     Active Substance: CITALOPRAM
     Dosage: 20 MILLIGRAM, QD
  5. BUSPIRONE [Suspect]
     Active Substance: BUSPIRONE HYDROCHLORIDE
     Indication: Drug therapy
     Dosage: 5 MILLIGRAM, QD
  6. BUSPIRONE [Suspect]
     Active Substance: BUSPIRONE HYDROCHLORIDE
     Dosage: 5 MILLIGRAM, QD
     Route: 065
  7. BUSPIRONE [Suspect]
     Active Substance: BUSPIRONE HYDROCHLORIDE
     Dosage: 5 MILLIGRAM, QD
     Route: 065
  8. BUSPIRONE [Suspect]
     Active Substance: BUSPIRONE HYDROCHLORIDE
     Dosage: 5 MILLIGRAM, QD
  9. VALPROIC ACID [Suspect]
     Active Substance: VALPROIC ACID
     Indication: Drug therapy
     Dosage: 250 MILLIGRAM, BID (EXTENDED RELEASE)
  10. VALPROIC ACID [Suspect]
     Active Substance: VALPROIC ACID
     Dosage: 250 MILLIGRAM, BID (EXTENDED RELEASE)
     Route: 065
  11. VALPROIC ACID [Suspect]
     Active Substance: VALPROIC ACID
     Dosage: 250 MILLIGRAM, BID (EXTENDED RELEASE)
     Route: 065
  12. VALPROIC ACID [Suspect]
     Active Substance: VALPROIC ACID
     Dosage: 250 MILLIGRAM, BID (EXTENDED RELEASE)
  13. DONEPEZIL [Suspect]
     Active Substance: DONEPEZIL
     Indication: Memory impairment
     Dosage: 10 MILLIGRAM, QD
  14. DONEPEZIL [Suspect]
     Active Substance: DONEPEZIL
     Dosage: 10 MILLIGRAM, QD
     Route: 065
  15. DONEPEZIL [Suspect]
     Active Substance: DONEPEZIL
     Dosage: 10 MILLIGRAM, QD
     Route: 065
  16. DONEPEZIL [Suspect]
     Active Substance: DONEPEZIL
     Dosage: 10 MILLIGRAM, QD
  17. TRAZODONE [Suspect]
     Active Substance: TRAZODONE HYDROCHLORIDE
     Indication: Insomnia
     Dosage: 100 MILLIGRAM, HS
  18. TRAZODONE [Suspect]
     Active Substance: TRAZODONE HYDROCHLORIDE
     Dosage: 100 MILLIGRAM, HS
  19. TRAZODONE [Suspect]
     Active Substance: TRAZODONE HYDROCHLORIDE
     Dosage: 100 MILLIGRAM, HS
     Route: 065
  20. TRAZODONE [Suspect]
     Active Substance: TRAZODONE HYDROCHLORIDE
     Dosage: 100 MILLIGRAM, HS
     Route: 065
  21. TRAZODONE [Suspect]
     Active Substance: TRAZODONE HYDROCHLORIDE
     Dosage: 50 MILLIGRAM, HS
  22. TRAZODONE [Suspect]
     Active Substance: TRAZODONE HYDROCHLORIDE
     Dosage: 50 MILLIGRAM, HS
  23. TRAZODONE [Suspect]
     Active Substance: TRAZODONE HYDROCHLORIDE
     Dosage: 50 MILLIGRAM, HS
     Route: 065
  24. TRAZODONE [Suspect]
     Active Substance: TRAZODONE HYDROCHLORIDE
     Dosage: 50 MILLIGRAM, HS
     Route: 065
  25. RISPERIDONE [Suspect]
     Active Substance: RISPERIDONE
     Indication: Drug therapy
     Dosage: 1 MILLIGRAM, BID (AS NEEDED)
  26. RISPERIDONE [Suspect]
     Active Substance: RISPERIDONE
     Dosage: 1 MILLIGRAM, BID (AS NEEDED)
     Route: 048
  27. RISPERIDONE [Suspect]
     Active Substance: RISPERIDONE
     Dosage: 1 MILLIGRAM, BID (AS NEEDED)
     Route: 048
  28. RISPERIDONE [Suspect]
     Active Substance: RISPERIDONE
     Dosage: 1 MILLIGRAM, BID (AS NEEDED)

REACTIONS (2)
  - Delirium [Unknown]
  - Hyperammonaemia [Unknown]
